FAERS Safety Report 10038125 (Version 1)
Quarter: 2014Q1

REPORT INFORMATION
  Report Type: Spontaneous
  Country: US (occurrence: None)
  Receive Date: 20140306
  Receipt Date: 20140306
  Transmission Date: 20141002
  Serious: Yes (Hospitalization)
  Sender: FDA-Public Use
  Company Number: 163-21880-12121485

PATIENT
  Age: 75 Year
  Sex: Female

DRUGS (25)
  1. REVLIMID (LENALIDOMIDE) (CAPSULES) [Suspect]
     Indication: PLASMA CELL MYELOMA
     Dosage: 15 MG, 1 IN 1 D, PO
     Route: 048
     Dates: start: 20121024
  2. DEXAMETHASONE (DEXAMETHASONE) (UNKNOWN) [Suspect]
     Indication: PLASMA CELL MYELOMA
     Dosage: 10 MG, 1 IN 1 D, PO
     Route: 048
     Dates: start: 20121024
  3. ELOTUZUMAB (ELOTUZUMAB) (UNKNOWN) [Suspect]
     Dosage: 10MG/KG, 1 IN 1 D, IV
     Route: 042
     Dates: start: 20121024
  4. FENTANYL (FENTANYL) [Concomitant]
  5. CLOBETASOL (CLOBETASOL) [Concomitant]
  6. KETOROLAC (KETOROLAC) [Concomitant]
  7. ZOFRAN (ONDANSETRON HYDROCHLORIDE) [Concomitant]
  8. DILAUDID (HYDROMORPHONE HYDROCHLORIDE) [Concomitant]
  9. ACYCLOVIR 9ACICLOVIR) [Concomitant]
  10. GABAPENTIN [Concomitant]
  11. SYNTHROID (LEVOTHYROXINE SODIUM) [Concomitant]
  12. PREVACID (LANSOPRAZOLE) [Concomitant]
  13. CYMBALTA [Concomitant]
  14. BENICAR (OLMESARTAN MEDOXOMIL) [Concomitant]
  15. FLONASE (FLUTICASONE PROPIONATE) [Concomitant]
  16. SENNA [Concomitant]
  17. COLACE (DOCUSATE SODIUM) [Concomitant]
  18. ASPIRIN (ACETYLSALICYLIC ACID) [Concomitant]
  19. CHLORPHENIRAMINE [Concomitant]
  20. LORTAB (VICODIN) [Concomitant]
  21. CIPRO (CIPROFLOXACIN) [Concomitant]
  22. VANCOMYCIN [Concomitant]
  23. POTASSIUM CHLORIDE [Concomitant]
  24. AZITHROMYCIN [Concomitant]
  25. ALBUTEROL (SALBUTAMOL) [Concomitant]

REACTIONS (1)
  - Dehydration [None]
